FAERS Safety Report 6845753-8 (Version None)
Quarter: 2010Q3

REPORT INFORMATION
  Report Type: 
  Country: None (occurrence: None)
  Receive Date: 20100715
  Receipt Date: 20070824
  Transmission Date: 20110219
  Serious: Yes (Other)
  Sender: FDA-Public Use
  Company Number: US-PFIZER INC-2007071403

PATIENT
  Age: 56 Year
  Sex: Male
  Weight: 140.6 kg

DRUGS (5)
  1. CHANTIX [Suspect]
  2. ALL OTHER THERAPEUTIC PRODUCTS [Concomitant]
  3. OXYCODONE HCL [Concomitant]
  4. ZETIA [Concomitant]
  5. LABETALOL HCL [Concomitant]

REACTIONS (1)
  - THROMBOSIS [None]
